FAERS Safety Report 9296915 (Version 7)
Quarter: 2014Q4

REPORT INFORMATION
  Report Type: Spontaneous
  Country: US (occurrence: US)
  Receive Date: 20130518
  Receipt Date: 20141002
  Transmission Date: 20150529
  Serious: Yes (Other)
  Sender: FDA-Public Use
  Company Number: US-009507513-1305USA010162

PATIENT
  Sex: Male
  Weight: 170.52 kg

DRUGS (3)
  1. FLOMAX [Concomitant]
     Active Substance: TAMSULOSIN HYDROCHLORIDE
     Indication: BENIGN PROSTATIC HYPERPLASIA
     Dosage: 0.4 MG, QD
     Route: 048
  2. PROSCAR [Suspect]
     Active Substance: FINASTERIDE
     Indication: BENIGN PROSTATIC HYPERPLASIA
     Dosage: 5 MG, QD
     Route: 048
     Dates: start: 1995, end: 201207
  3. FINASTERIDE. [Suspect]
     Active Substance: FINASTERIDE
     Indication: BENIGN PROSTATIC HYPERPLASIA
     Dosage: 5 MG, QD
     Route: 048
     Dates: start: 2008, end: 201207

REACTIONS (35)
  - Uvulopalatopharyngoplasty [Unknown]
  - Renal failure [Unknown]
  - Open reduction of fracture [Unknown]
  - Urge incontinence [Recovered/Resolved]
  - Chronic obstructive pulmonary disease [Unknown]
  - Vena cava filter insertion [Unknown]
  - Large intestinal ulcer [Unknown]
  - Erectile dysfunction [Unknown]
  - Loss of libido [Unknown]
  - Femur fracture [Unknown]
  - Anxiety [Unknown]
  - Hypertension [Unknown]
  - Type 2 diabetes mellitus [Not Recovered/Not Resolved]
  - Depression [Not Recovered/Not Resolved]
  - Prostatic disorder [Unknown]
  - Aortic aneurysm [Unknown]
  - Cellulitis [Unknown]
  - Abdominal exploration [Unknown]
  - Haematuria [Unknown]
  - Road traffic accident [Unknown]
  - Sleep apnoea syndrome [Unknown]
  - Sexual dysfunction [Unknown]
  - Renal cyst [Unknown]
  - Gout [Unknown]
  - Catheterisation cardiac [Unknown]
  - Hypogonadism [Not Recovered/Not Resolved]
  - Hypercholesterolaemia [Unknown]
  - Hernia repair [Unknown]
  - Cardiac disorder [Unknown]
  - Deep vein thrombosis [Unknown]
  - Staphylococcal infection [Unknown]
  - Limb asymmetry [Unknown]
  - Disability [Not Recovered/Not Resolved]
  - Venous haemorrhage [Unknown]
  - Arthroscopy [Unknown]

NARRATIVE: CASE EVENT DATE: 1995
